FAERS Safety Report 20216678 (Version 1)
Quarter: 2021Q4

REPORT INFORMATION
  Report Type: Spontaneous
  Country: US (occurrence: None)
  Receive Date: 20211221
  Receipt Date: 20211221
  Transmission Date: 20220303
  Serious: Yes (Life-Threatening)
  Sender: FDA-Public Use
  Company Number: None

PATIENT
  Age: 68 Year
  Sex: Male
  Weight: 120 kg

DRUGS (1)
  1. PROTAMINE SULFATE [Suspect]
     Active Substance: PROTAMINE SULFATE
     Indication: Atrial fibrillation
     Dosage: FREQUENCY : ONCE;?
     Route: 042
     Dates: start: 20210913, end: 20210913

REACTIONS (5)
  - Bradycardia [None]
  - Cardiac arrest [None]
  - Pulseless electrical activity [None]
  - Anaphylactic reaction [None]
  - Hypotension [None]

NARRATIVE: CASE EVENT DATE: 20210914
